FAERS Safety Report 8024266-4 (Version None)
Quarter: 2012Q1

REPORT INFORMATION
  Report Type: 
  Country: None (occurrence: None)
  Receive Date: 20120103
  Receipt Date: 20111227
  Transmission Date: 20120608
  Serious: Yes (Death)
  Sender: FDA-Public Use
  Company Number: 2010004652

PATIENT
  Age: 52 Year
  Sex: Female

DRUGS (11)
  1. VITAMIN B COMPLEX (B-KOMPLEX ^LECIVA^) [Concomitant]
  2. VICODIN [Concomitant]
  3. ALBUTEROL [Concomitant]
  4. TARCEVA [Suspect]
     Indication: LUNG NEOPLASM MALIGNANT
     Dosage: 100 MG, UID/QD, ORAL; 100 MG, UID/QD, ORAL
     Route: 048
     Dates: start: 20100827
  5. TARCEVA [Suspect]
     Indication: METASTATIC NEOPLASM
     Dosage: 100 MG, UID/QD, ORAL; 100 MG, UID/QD, ORAL
     Route: 048
     Dates: start: 20100827
  6. TARCEVA [Suspect]
     Indication: LUNG NEOPLASM MALIGNANT
     Dosage: 100 MG, UID/QD, ORAL; 100 MG, UID/QD, ORAL
     Route: 048
     Dates: start: 20101023
  7. TARCEVA [Suspect]
     Indication: METASTATIC NEOPLASM
     Dosage: 100 MG, UID/QD, ORAL; 100 MG, UID/QD, ORAL
     Route: 048
     Dates: start: 20101023
  8. ADVAIR (FLUTICASONE PROPIONATE, SALMETEROL XINAFOATE) AEROSOL [Concomitant]
  9. SPIRIVA [Concomitant]
  10. SELENIUM (SELENIUM) [Concomitant]
  11. VITAMIN D3 (COLCECALCIFEROL) [Concomitant]

REACTIONS (3)
  - DERMATITIS ACNEIFORM [None]
  - DIARRHOEA [None]
  - INCORRECT DOSE ADMINISTERED [None]
